FAERS Safety Report 6885346-X (Version None)
Quarter: 2010Q3

REPORT INFORMATION
  Report Type: 
  Country: None (occurrence: None)
  Receive Date: 20100727
  Receipt Date: 20100709
  Transmission Date: 20110219
  Serious: Yes (Other)
  Sender: FDA-Public Use
  Company Number: IPC201007-000209

PATIENT
  Age: 41 Year
  Sex: Female

DRUGS (3)
  1. FUROSEMIDE [Suspect]
     Indication: CARDIAC FAILURE CONGESTIVE
     Dosage: 80 MG TWICE DAILY;
     Dates: start: 20050101
  2. FUROSEMIDE [Suspect]
     Indication: LUNG DISORDER
     Dosage: 80 MG TWICE DAILY;
     Dates: start: 20050101
  3. ACETAMINOPHEN [Suspect]
     Indication: ARTHRITIS
     Dosage: 1950 MG, 3 IN 1 D,
     Dates: start: 20090101, end: 20100601

REACTIONS (6)
  - BACTERIAL INFECTION [None]
  - DERMATITIS INFECTED [None]
  - PAIN [None]
  - PRODUCT CONTAMINATION [None]
  - PRODUCT QUALITY ISSUE [None]
  - RASH GENERALISED [None]
